FAERS Safety Report 8997620 (Version 2)
Quarter: 2013Q1

REPORT INFORMATION
  Report Type: Spontaneous
  Country: BR (occurrence: BR)
  Receive Date: 20130104
  Receipt Date: 20130219
  Transmission Date: 20140127
  Serious: Yes (Hospitalization)
  Sender: FDA-Public Use
  Company Number: BR-009507513-1301BRA000341

PATIENT
  Sex: Male
  Weight: 60 kg

DRUGS (5)
  1. VICTRELIS [Suspect]
     Indication: HEPATITIS C
     Dosage: 800 MG, QAM
     Route: 048
     Dates: start: 20120923, end: 20121222
  2. VICTRELIS [Suspect]
     Dosage: 800 MG, QPM
     Route: 048
     Dates: start: 201209, end: 20121222
  3. RIBAVIRIN [Suspect]
     Indication: HEPATITIS C
     Dosage: 4 TABLETS, QAM
     Route: 048
     Dates: start: 20120923, end: 20121222
  4. RIBAVIRIN [Suspect]
     Dosage: 4 TABLETS, QPM
     Route: 048
     Dates: start: 201209, end: 20121222
  5. PEGINTRON [Suspect]
     Indication: HEPATITIS C
     Dosage: UNK, QW
     Dates: start: 20120923, end: 20121222

REACTIONS (4)
  - Oesophageal haemorrhage [Unknown]
  - Dysuria [Unknown]
  - Underdose [Unknown]
  - Overdose [Unknown]
